FAERS Safety Report 5470577-6 (Version None)
Quarter: 2007Q3

REPORT INFORMATION
  Report Type: 
  Country: None (occurrence: None)
  Receive Date: 20070928
  Receipt Date: 20070917
  Transmission Date: 20080115
  Serious: Yes (Hospitalization)
  Sender: FDA-Public Use
  Company Number: FR-JNJFOC-20041203620

PATIENT
  Sex: Male

DRUGS (40)
  1. TMC114 [Suspect]
     Route: 048
  2. TMC114 [Suspect]
     Indication: HIV INFECTION
     Route: 048
  3. RITONAVIR [Suspect]
     Indication: HIV INFECTION
     Route: 048
  4. LAMIVUDINE [Suspect]
     Indication: HIV INFECTION
     Route: 048
  5. TENOFOVIR DISOPROXIL FUMARATE [Suspect]
     Indication: HIV INFECTION
     Route: 048
  6. ENFUVIRTIDE [Suspect]
     Indication: HIV INFECTION
     Route: 058
  7. HELM COTRIMOXAZOLE [Concomitant]
     Indication: ANTIFUNGAL PROPHYLAXIS
     Dosage: STARTED PRE-TRIAL
     Route: 048
  8. PREDNISONE [Concomitant]
     Indication: SKIN NECROSIS
     Route: 048
  9. PERINDOPRIL ERBUMINE [Concomitant]
     Indication: HYPERTENSION
     Route: 048
  10. NICARDIPINE HYDROCHLORIDE [Concomitant]
     Indication: HYPERTENSION
     Route: 048
  11. SPIRONOLACTONE [Concomitant]
     Indication: HYPERTENSION
     Route: 048
  12. CLOMIPRAMINE HYDROCHLORIDE [Concomitant]
     Route: 048
  13. CLOMIPRAMINE HYDROCHLORIDE [Concomitant]
     Route: 048
  14. CLOMIPRAMINE HYDROCHLORIDE [Concomitant]
     Route: 048
  15. CLOMIPRAMINE HYDROCHLORIDE [Concomitant]
     Indication: DEPRESSION
     Route: 048
  16. CACIT [Concomitant]
     Indication: CALCIUM DEFICIENCY
     Route: 048
  17. PREDNISONE [Concomitant]
     Route: 048
  18. PREDNISONE [Concomitant]
     Route: 048
  19. PREDNISONE [Concomitant]
     Route: 048
  20. PREDNISONE [Concomitant]
     Route: 048
  21. PREDNISONE [Concomitant]
     Indication: OEDEMA PERIPHERAL
     Route: 048
  22. PREDNISONE [Concomitant]
     Indication: NECROSIS
     Route: 048
  23. POTASSIUM CHLORIDE [Concomitant]
     Indication: MINERAL SUPPLEMENTATION
     Route: 048
  24. NICARDIPINE HCL [Concomitant]
     Indication: HYPERTENSION
     Route: 048
  25. OMEPRAZOLE [Concomitant]
     Indication: PROPHYLAXIS
     Route: 048
  26. FLUINDIONE [Concomitant]
     Indication: OEDEMA PERIPHERAL
     Route: 048
  27. CLONAZEPAM [Concomitant]
     Indication: NECROSIS ISCHAEMIC
     Route: 048
  28. ACEBUTOLOL HYDROCHLORIDE [Concomitant]
     Indication: HYPERTENSION
     Route: 048
  29. CITALOPRAM HYDROBROMIDE [Concomitant]
     Dosage: STARTED PRE-TRIAL
     Route: 048
  30. CITALOPRAM HYDROBROMIDE [Concomitant]
     Indication: DEPRESSION
     Route: 048
  31. MORPHINE SULFATE [Concomitant]
     Route: 048
  32. MORPHINE SULFATE [Concomitant]
     Route: 048
  33. MORPHINE SULFATE [Concomitant]
     Route: 048
  34. MORPHINE SULFATE [Concomitant]
     Indication: NECROSIS
     Route: 048
  35. MORPHINE SULFATE [Concomitant]
     Indication: PAIN
     Route: 048
  36. TARDYFERON [Concomitant]
     Indication: ANAEMIA PROPHYLAXIS
     Route: 048
  37. FLUCONAZOLE [Concomitant]
     Indication: CANDIDIASIS
     Route: 048
  38. PRAVASTATIN SODIUM [Concomitant]
     Indication: ISCHAEMIC HEART DISEASE PROPHYLAXIS
     Route: 048
  39. VALACYCLOVIR HCL [Concomitant]
     Route: 048
  40. VALACYCLOVIR HCL [Concomitant]
     Indication: ANTIVIRAL PROPHYLAXIS
     Route: 048

REACTIONS (12)
  - BLOOD PRESSURE INCREASED [None]
  - CREPITATIONS [None]
  - CRYOGLOBULINAEMIA [None]
  - HAEMOPTYSIS [None]
  - HEPATOJUGULAR REFLUX [None]
  - HEPATOMEGALY [None]
  - LEFT VENTRICULAR FAILURE [None]
  - MYOCARDITIS [None]
  - ORTHOPNOEA [None]
  - OXYGEN SATURATION DECREASED [None]
  - PLEURAL EFFUSION [None]
  - PULMONARY CONGESTION [None]
